FAERS Safety Report 8400376-4 (Version None)
Quarter: 2012Q2

REPORT INFORMATION
  Report Type: 
  Country: None (occurrence: None)
  Receive Date: 20120531
  Receipt Date: 20120530
  Transmission Date: 20120825
  Serious: Yes (Hospitalization, Other)
  Sender: FDA-Public Use
  Company Number: US-ACTELION-A-US2011-58399

PATIENT

DRUGS (14)
  1. LORTAB [Concomitant]
  2. VANCOMYCIN [Suspect]
     Dosage: UNK
     Dates: start: 20111125
  3. FERROUS GLUCONATE [Concomitant]
  4. TRACLEER [Suspect]
     Indication: PULMONARY ARTERIAL HYPERTENSION
     Dosage: UNK
     Route: 048
     Dates: start: 20070505
  5. TADALAFIL [Concomitant]
  6. HYDROCORTISONE [Concomitant]
  7. ZOFRAN [Concomitant]
  8. DIALYVITE [Concomitant]
  9. IMODIUM [Concomitant]
  10. ESOMEPRAZOLE MAGNESIUM [Concomitant]
  11. EPOPROSTENOL SODIUM [Suspect]
     Indication: PULMONARY ARTERIAL HYPERTENSION
     Dosage: 18 NG/KG, PER MIN
     Route: 042
     Dates: start: 20110307
  12. ASPIRIN [Concomitant]
  13. SERTRALINE HYDROCHLORIDE [Concomitant]
  14. DRISDOL [Concomitant]

REACTIONS (11)
  - DEVICE RELATED SEPSIS [None]
  - THROMBOCYTOPENIA [None]
  - MALAISE [None]
  - RENAL TUBULAR NECROSIS [None]
  - URINARY TRACT INFECTION FUNGAL [None]
  - RENAL FAILURE ACUTE [None]
  - HYPOTENSION [None]
  - LEUKOCYTOSIS [None]
  - BLOOD CREATININE INCREASED [None]
  - MYALGIA [None]
  - PYREXIA [None]
